FAERS Safety Report 19616702 (Version 1)
Quarter: 2021Q3

REPORT INFORMATION
  Report Type: Spontaneous
  Country: MY (occurrence: MY)
  Receive Date: 20210728
  Receipt Date: 20210728
  Transmission Date: 20211014
  Serious: Yes (Hospitalization, Other)
  Sender: FDA-Public Use
  Company Number: MY-B.I. PHARMACEUTICALS,INC./RIDGEFIELD-2021-BI-117486

PATIENT
  Age: 20 Year
  Sex: Female

DRUGS (1)
  1. PRADAXA [Suspect]
     Active Substance: DABIGATRAN ETEXILATE MESYLATE
     Indication: CEREBRAL VENOUS THROMBOSIS
     Route: 048
     Dates: start: 202105, end: 202105

REACTIONS (3)
  - Off label use [Unknown]
  - Abortion [Unknown]
  - Central nervous system infection [Unknown]
